FAERS Safety Report 6406565 (Version 7)
Quarter: 2014Q4

REPORT INFORMATION
  Report Type: Spontaneous
  Country: GB (occurrence: GB)
  Receive Date: 20070905
  Receipt Date: 20141008
  Transmission Date: 20150529
  Serious: Yes (Disabling, Other)
  Sender: FDA-Public Use
  Company Number: GB-PFIZER INC-2007071431

PATIENT
  Sex: Female

DRUGS (5)
  1. CHAMPIX [Suspect]
     Active Substance: VARENICLINE TARTRATE
     Indication: SMOKING CESSATION THERAPY
     Dosage: 0.5 MG, 2X/DAY
     Route: 048
     Dates: start: 20070227, end: 2007
  2. CHAMPIX [Interacting]
     Active Substance: VARENICLINE TARTRATE
     Dosage: 0.5 MG, DAILY
     Route: 048
     Dates: start: 200703, end: 200703
  3. CHAMPIX [Interacting]
     Active Substance: VARENICLINE TARTRATE
     Dosage: UNK (DOSE OF VARENICLINE WAS INCREASED)
     Route: 048
     Dates: start: 2007, end: 200703
  4. DIHYDROCODEINE BITARTRATE [Interacting]
     Active Substance: DIHYDROCODEINE BITARTRATE
     Indication: BACK PAIN
     Dosage: UNK
     Route: 048
  5. CHAMPIX [Interacting]
     Active Substance: VARENICLINE TARTRATE
     Dosage: 0.5 MG, 2X/DAY
     Route: 048
     Dates: start: 200703, end: 20070316

REACTIONS (7)
  - Activities of daily living impaired [Recovered/Resolved]
  - Potentiating drug interaction [Recovered/Resolved]
  - Dysphoria [Recovered/Resolved]
  - Impaired work ability [Recovered/Resolved]
  - Memory impairment [Recovered/Resolved]
  - Derealisation [Recovered/Resolved]
  - Feeling abnormal [Recovered/Resolved]

NARRATIVE: CASE EVENT DATE: 200703
